FAERS Safety Report 6264212-7 (Version None)
Quarter: 2009Q3

REPORT INFORMATION
  Report Type: 
  Country: None (occurrence: None)
  Receive Date: 20090710
  Receipt Date: 20090630
  Transmission Date: 20100115
  Serious: Yes (Other)
  Sender: FDA-Public Use
  Company Number: GB-ABBOTT-09P-167-0573470-00

PATIENT
  Sex: Male
  Weight: 73.5 kg

DRUGS (2)
  1. HUMIRA [Suspect]
     Indication: PSORIASIS
     Route: 058
     Dates: start: 20090217, end: 20090217
  2. HUMIRA [Suspect]
     Route: 058

REACTIONS (3)
  - BLISTER [None]
  - RASH [None]
  - VIRAL INFECTION [None]
